FAERS Safety Report 5968853-3 (Version None)
Quarter: 2008Q4

REPORT INFORMATION
  Report Type: 
  Country: None (occurrence: None)
  Receive Date: 20081125
  Receipt Date: 20081125
  Transmission Date: 20090506
  Serious: No
  Sender: FDA-Public Use
  Company Number: None

PATIENT
  Age: 67 Year
  Sex: Female
  Weight: 65.318 kg

DRUGS (1)
  1. LISINOPRIL [Suspect]
     Indication: BLOOD PRESSURE INCREASED
     Dosage: 20MG ONCE A DAY PO
     Route: 048
     Dates: start: 20080927, end: 20081030

REACTIONS (2)
  - DISORIENTATION [None]
  - TINNITUS [None]
